FAERS Safety Report 24793365 (Version 1)
Quarter: 2024Q4

REPORT INFORMATION
  Report Type: Spontaneous
  Country: EG (occurrence: EG)
  Receive Date: 20241231
  Receipt Date: 20241231
  Transmission Date: 20250115
  Serious: Yes (Death)
  Sender: AMGEN
  Company Number: EG-PFIZER INC-PV202400168701

PATIENT
  Age: 72 Year
  Sex: Male

DRUGS (8)
  1. ENBREL [Suspect]
     Active Substance: ETANERCEPT
     Indication: Rheumatoid arthritis
     Dosage: 50 MG, WEEKLY (ONE DOSE EVERY WEEK)
     Route: 058
     Dates: start: 20240229
  2. METHOTREXATE [Concomitant]
     Active Substance: METHOTREXATE
     Dosage: 2 DF, WEEKLY (2 TABLETS EVERY THURSDAY AFTER DINNER)
  3. FOLICAP [Concomitant]
     Dosage: 1 DF, 2X/WEEK (A TABLET AFTER LUNCH ON SATURDAYS AND SUNDAYS)
  4. ESMATAC [Concomitant]
     Dosage: 1 DF (ONE TABLET AFTER BREAKFAST)
  5. PLAQUENIL [Concomitant]
     Active Substance: HYDROXYCHLOROQUINE SULFATE
     Dosage: 1 DF (ONE TABLET AFTER DINNER)
  6. APETOID [Concomitant]
     Dosage: 1 DF (ONE TABLET AFTER LUNCH)
  7. IBUPROFEN [Concomitant]
     Active Substance: IBUPROFEN
     Dosage: 1 DF (ONE TABLET AFTER BREAKFAST)
  8. FLACORT [Concomitant]
     Dosage: 1 DF (ONE TABLET AFTER BREAKFAST)

REACTIONS (1)
  - Death [Fatal]

NARRATIVE: CASE EVENT DATE: 20241023
